FAERS Safety Report 21949220 (Version 1)
Quarter: 2023Q1

REPORT INFORMATION
  Report Type: Spontaneous
  Country: US (occurrence: US)
  Receive Date: 20230203
  Receipt Date: 20230203
  Transmission Date: 20230417
  Serious: Yes (Other)
  Sender: FDA-Public Use
  Company Number: US-002147023-NVSC2023US019809

PATIENT
  Sex: Female

DRUGS (1)
  1. MEKINIST [Suspect]
     Active Substance: TRAMETINIB DIMETHYL SULFOXIDE
     Indication: Ovarian cancer metastatic
     Dosage: 2 MG, QD
     Route: 048
     Dates: start: 202301

REACTIONS (3)
  - Neuropathy peripheral [Unknown]
  - Oedema [Unknown]
  - Product use in unapproved indication [Unknown]
